FAERS Safety Report 4984562-1 (Version None)
Quarter: 2006Q2

REPORT INFORMATION
  Report Type: 
  Country: None (occurrence: None)
  Receive Date: 20060427
  Receipt Date: 20050811
  Transmission Date: 20061013
  Serious: No
  Sender: FDA-Public Use
  Company Number: US-GLAXOSMITHKLINE-A0569833A

PATIENT
  Sex: Female

DRUGS (5)
  1. DEXEDRINE [Suspect]
     Indication: WEIGHT CONTROL
     Dosage: 40MG PER DAY
     Route: 048
  2. WELLBUTRIN [Suspect]
     Indication: DEPRESSION
     Dosage: 300MG TWICE PER DAY
     Route: 048
  3. SEROQUEL [Suspect]
  4. TOPAMAX [Concomitant]
  5. SEROQUEL [Concomitant]

REACTIONS (5)
  - ABNORMAL BEHAVIOUR [None]
  - INSOMNIA [None]
  - PSYCHOMOTOR HYPERACTIVITY [None]
  - SENSITIVITY OF TEETH [None]
  - TOOTH DISCOLOURATION [None]
